FAERS Safety Report 5671427-5 (Version None)
Quarter: 2008Q1

REPORT INFORMATION
  Report Type: 
  Country: None (occurrence: None)
  Receive Date: 20080318
  Receipt Date: 20080310
  Transmission Date: 20080703
  Serious: Yes (Other)
  Sender: FDA-Public Use
  Company Number: US-PFIZER INC-2008022909

PATIENT
  Sex: Female

DRUGS (7)
  1. NORVASC [Suspect]
     Indication: HYPERTENSION
  2. NORVASC [Suspect]
  3. ATENOLOL [Concomitant]
  4. COZAAR [Concomitant]
  5. SYNTHROID [Concomitant]
  6. PLAVIX [Concomitant]
  7. ACETYLSALICYLIC ACID [Concomitant]

REACTIONS (4)
  - CHOKING [None]
  - FOREIGN BODY TRAUMA [None]
  - HYPERTENSION [None]
  - THYROID OPERATION [None]
